FAERS Safety Report 10438619 (Version 1)
Quarter: 2014Q3

REPORT INFORMATION
  Report Type: Spontaneous
  Country: US (occurrence: US)
  Receive Date: 20140908
  Receipt Date: 20140908
  Transmission Date: 20150326
  Serious: Yes (Death, Other)
  Sender: FDA-Public Use
  Company Number: PHHY2014US111633

PATIENT
  Age: 52 Year
  Sex: Male

DRUGS (6)
  1. SORAFENIB [Suspect]
     Active Substance: SORAFENIB
     Indication: HEPATOCELLULAR CARCINOMA
  2. IMATINIB [Suspect]
     Active Substance: IMATINIB
     Indication: HAEMANGIOMA-THROMBOCYTOPENIA SYNDROME
     Dosage: 400 MG, DAILY
  3. PREDNISONE. [Suspect]
     Active Substance: PREDNISONE
     Indication: HAEMANGIOMA-THROMBOCYTOPENIA SYNDROME
     Dosage: 100 MG, DAILY
     Dates: start: 200807, end: 201101
  4. BEVACIZUMAB [Concomitant]
     Active Substance: BEVACIZUMAB
     Dosage: 5 MG/KG, QW
     Dates: start: 200907, end: 201101
  5. CYCLOPHOSPHAMIDE. [Suspect]
     Active Substance: CYCLOPHOSPHAMIDE
     Dosage: 1500 MG, UNK
     Route: 042
  6. VINCRISTINE [Suspect]
     Active Substance: VINCRISTINE
     Indication: HAEMANGIOMA-THROMBOCYTOPENIA SYNDROME

REACTIONS (6)
  - Second primary malignancy [Unknown]
  - Hepatocellular carcinoma [Unknown]
  - Death [Fatal]
  - Drug ineffective [Unknown]
  - Neuropathy peripheral [Unknown]
  - Nausea [Unknown]
